FAERS Safety Report 6910325-3 (Version None)
Quarter: 2010Q3

REPORT INFORMATION
  Report Type: 
  Country: None (occurrence: None)
  Receive Date: 20100806
  Receipt Date: 20100727
  Transmission Date: 20110219
  Serious: Yes (Death, Hospitalization, Other)
  Sender: FDA-Public Use
  Company Number: US-PFIZER INC-2004043537

PATIENT
  Sex: Male

DRUGS (12)
  1. NEURONTIN [Suspect]
     Indication: NEUROPATHY PERIPHERAL
     Dosage: 300 MG, 2X/DAY
     Route: 048
     Dates: start: 19960930
  2. NEURONTIN [Suspect]
     Indication: RESTLESS LEGS SYNDROME
  3. NEURONTIN [Suspect]
     Indication: POLYNEUROPATHY IDIOPATHIC PROGRESSIVE
  4. MIDAZOLAM HCL [Suspect]
     Indication: ILL-DEFINED DISORDER
     Dosage: UNK
     Route: 042
     Dates: start: 20020618, end: 20020618
  5. ULTRAM [Suspect]
     Indication: PAIN
     Dosage: UNK
     Route: 048
  6. CITALOPRAM [Suspect]
     Indication: ILL-DEFINED DISORDER
     Dosage: UNK
     Route: 065
     Dates: start: 20000101
  7. PANCURONIUM [Suspect]
     Indication: ILL-DEFINED DISORDER
     Dosage: UNK
     Route: 042
     Dates: start: 20020618, end: 20020618
  8. ALL OTHER THERAPEUTIC PRODUCTS [Suspect]
     Indication: ILL-DEFINED DISORDER
     Dosage: UNK
     Route: 065
  9. AMBIEN [Concomitant]
     Dosage: UNK
     Route: 048
  10. IBUPROFEN [Concomitant]
     Dosage: UNK
     Route: 048
  11. KLONOPIN [Concomitant]
     Dosage: UNK
     Route: 048
  12. REMERON [Concomitant]
     Dosage: UNK
     Route: 048

REACTIONS (18)
  - ANXIETY [None]
  - COGNITIVE DISORDER [None]
  - COMPLETED SUICIDE [None]
  - DEPRESSION [None]
  - DRUG INEFFECTIVE [None]
  - FATIGUE [None]
  - HEAD DISCOMFORT [None]
  - INJURY [None]
  - LIBIDO DECREASED [None]
  - LIMB DISCOMFORT [None]
  - MYOCLONUS [None]
  - PAIN [None]
  - PARAESTHESIA [None]
  - RESPIRATORY DISTRESS [None]
  - RESTLESSNESS [None]
  - SLEEP DISORDER [None]
  - SOMNOLENCE [None]
  - SUICIDAL IDEATION [None]
